FAERS Safety Report 14483083 (Version 2)
Quarter: 2018Q2

REPORT INFORMATION
  Report Type: Spontaneous
  Country: US (occurrence: US)
  Receive Date: 20180203
  Receipt Date: 20180601
  Transmission Date: 20180711
  Serious: Yes (Other)
  Sender: FDA-Public Use
  Company Number: US-009507513-1802USA000283

PATIENT
  Age: 62 Year
  Sex: Female

DRUGS (3)
  1. ORITAVANCIN DIPHOSPHATE [Suspect]
     Active Substance: ORITAVANCIN
     Indication: OSTEOMYELITIS BACTERIAL
     Dosage: 1200 MG, ONCE
  2. INVANZ [Suspect]
     Active Substance: ERTAPENEM SODIUM
     Indication: OSTEOMYELITIS BACTERIAL
  3. ORITAVANCIN DIPHOSPHATE [Suspect]
     Active Substance: ORITAVANCIN
     Dosage: 800 MG, QW (4 DOSES IN TOTAL)

REACTIONS (3)
  - Anaemia [Recovered/Resolved]
  - Product use in unapproved indication [Unknown]
  - Leukopenia [Recovered/Resolved]
